FAERS Safety Report 6857979-8 (Version None)
Quarter: 2010Q3

REPORT INFORMATION
  Report Type: 
  Country: None (occurrence: None)
  Receive Date: 20100714
  Receipt Date: 20100630
  Transmission Date: 20110219
  Serious: Yes (Death, Hospitalization, Other)
  Sender: FDA-Public Use
  Company Number: 2010SCPR001157

PATIENT
  Age: 38 Year
  Sex: Female
  Weight: 45 kg

DRUGS (8)
  1. METRONIDAZOLE [Suspect]
     Indication: BACILLUS INFECTION
     Dosage: 1500 MG; IV ADMINISTERED ONCE DAILY (OVER 90 MINUTES); INTRAVENOUS, 500 MG, QID FOR 6 WEEKS; INTRAVE
     Route: 042
  2. METRONIDAZOLE [Suspect]
     Indication: CORYNEBACTERIUM INFECTION
     Dosage: 1500 MG; IV ADMINISTERED ONCE DAILY (OVER 90 MINUTES); INTRAVENOUS, 500 MG, QID FOR 6 WEEKS; INTRAVE
     Route: 042
  3. BACLOFEN [Suspect]
     Indication: PAIN
     Dosage: 25 MG TID, (NOT CODED)
  4. TEICOPLANIN (TEICOPLANIN) UNKNOWN [Suspect]
     Indication: INFECTION
     Dosage: 400 MG ONCE DAILY, UNKNOWN
  5. TRIMETHOPRIM + SULFAMETHOXAZOLE [Suspect]
     Indication: INFECTION
     Dosage: 480 MG, BID,
  6. OMEPRAZOLE [Suspect]
     Indication: PRODUCT USED FOR UNKNOWN INDICATION
     Dosage: 20 MG ONCE DAILY, UNKNOWN
  7. RIFAMPICIN [Suspect]
     Indication: OSTEOMYELITIS
     Dosage: 450 MG, BID;
  8. VANCOMYCIN [Suspect]
     Dosage: 1000 MG, BID;

REACTIONS (14)
  - BLOOD POTASSIUM DECREASED [None]
  - CENTRAL-ALVEOLAR HYPOVENTILATION [None]
  - CEREBRAL VENTRICLE DILATATION [None]
  - COMA [None]
  - CONVULSION [None]
  - DEPENDENCE ON RESPIRATOR [None]
  - DYSARTHRIA [None]
  - GENERAL PHYSICAL HEALTH DETERIORATION [None]
  - PUPILS UNEQUAL [None]
  - SOMNOLENCE [None]
  - STENOTROPHOMONAS TEST POSITIVE [None]
  - STRESS [None]
  - TOXIC ENCEPHALOPATHY [None]
  - VITAMIN B1 DEFICIENCY [None]
